FAERS Safety Report 18102184 (Version 2)
Quarter: 2020Q3

REPORT INFORMATION
  Report Type: Report from Study
  Country: CA (occurrence: CA)
  Receive Date: 20200803
  Receipt Date: 20200910
  Transmission Date: 20201103
  Serious: Yes (Death)
  Sender: FDA-Public Use
  Company Number: CA-OCTA-ONORM02420CA

PATIENT
  Sex: Female

DRUGS (1)
  1. CUTAQUIG [Suspect]
     Active Substance: HUMAN IMMUNOGLOBULIN G
     Indication: DERMATOMYOSITIS
     Route: 058
     Dates: start: 20200625

REACTIONS (1)
  - Death [Fatal]
